FAERS Safety Report 6798930-9 (Version None)
Quarter: 2010Q2

REPORT INFORMATION
  Report Type: 
  Country: None (occurrence: None)
  Receive Date: 20100623
  Receipt Date: 20100602
  Transmission Date: 20101027
  Serious: Yes (Hospitalization)
  Sender: FDA-Public Use
  Company Number: JP-SOLVAY-00310003576

PATIENT
  Age: 32 Year
  Sex: Female

DRUGS (8)
  1. LUVOX [Suspect]
     Indication: DEPRESSION
     Dosage: 25 MILLIGRAM(S) ORAL
     Route: 048
     Dates: start: 20100118, end: 20100523
  2. FAMOTIDINE [Suspect]
     Indication: DRUG USE FOR UNKNOWN INDICATION
     Dosage: 40 MILLIGRAM(S), ORAL
     Route: 048
     Dates: start: 20100512
  3. PRIMPERAN TAB [Suspect]
     Indication: DRUG USE FOR UNKNOWN INDICATION
     Dosage: ORAL
     Route: 048
     Dates: start: 20100512, end: 20100512
  4. PAXIL [Suspect]
     Indication: DRUG USE FOR UNKNOWN INDICATION
     Dosage: 40 MILLIGRAM(S), ORAL
     Route: 048
     Dates: start: 20081021
  5. LEVOTOMIN (LEVOMEPROMAZINE MALEATE) [Suspect]
     Indication: DRUG USE FOR UNKNOWN INDICATION
     Dosage: 5 MILLIGRAM(S), ORAL
     Route: 048
     Dates: start: 20080722
  6. HALCION [Suspect]
     Indication: DRUG USE FOR UNKNOWN INDICATION
     Dosage: 0.25 MILLIGRAM(S), ORAL
     Route: 048
     Dates: start: 20090729, end: 20100525
  7. MUCOSTA (REBAMIPIDE) [Suspect]
     Indication: DRUG USE FOR UNKNOWN INDICATION
     Dosage: 300 MILLIGRAM(S), ORAL
     Route: 048
     Dates: start: 20100512
  8. ZYPREXA [Concomitant]

REACTIONS (1)
  - LIVER DISORDER [None]
